FAERS Safety Report 8229521-0 (Version None)
Quarter: 2012Q1

REPORT INFORMATION
  Report Type: 
  Country: None (occurrence: None)
  Receive Date: 20120322
  Receipt Date: 20120320
  Transmission Date: 20120608
  Serious: Yes (Hospitalization, Other)
  Sender: FDA-Public Use
  Company Number: US-PFIZER INC-2012073541

PATIENT
  Sex: Female
  Weight: 95 kg

DRUGS (7)
  1. LIPITOR [Suspect]
     Indication: HIGH DENSITY LIPOPROTEIN INCREASED
     Dosage: 80 MG, DAILY
  2. METFORMIN [Concomitant]
     Indication: DIABETES MELLITUS
     Dosage: 500 MG, 3X/DAY
     Route: 048
  3. PLAVIX [Concomitant]
     Indication: ANTICOAGULANT THERAPY
     Dosage: UNK
  4. COREG [Suspect]
     Indication: HYPERTENSION
     Dosage: 12.5 MG, 2X/DAY
  5. NIASPAN [Suspect]
     Indication: HIGH DENSITY LIPOPROTEIN ABNORMAL
     Dosage: UNK, DAILY
     Dates: start: 20090101
  6. LIPITOR [Suspect]
     Indication: BLOOD CHOLESTEROL INCREASED
     Dosage: 40 MG, DAILY
  7. LISINOPRIL [Suspect]
     Indication: HYPERTENSION
     Dosage: 10 MG, DAILY

REACTIONS (7)
  - PRURITUS [None]
  - RASH [None]
  - SWELLING FACE [None]
  - VASCULAR GRAFT [None]
  - BLOOD PRESSURE INCREASED [None]
  - ERYTHEMA [None]
  - FLUSHING [None]
